FAERS Safety Report 9388024 (Version 3)
Quarter: 2014Q2

REPORT INFORMATION
  Report Type: Spontaneous
  Country: JP (occurrence: None)
  Receive Date: 20130703
  Receipt Date: 20140415
  Transmission Date: 20141212
  Serious: Yes (Death)
  Sender: FDA-Public Use
  Company Number: JP-012183

PATIENT
  Sex: Male

DRUGS (1)
  1. GONAX [Suspect]
     Indication: PROSTATE CANCER
     Route: 058
     Dates: start: 20130621, end: 20130621

REACTIONS (4)
  - Sudden death [None]
  - Cardiac failure [None]
  - Disease progression [None]
  - Prostate cancer [None]
